FAERS Safety Report 9059897 (Version 1)
Quarter: 2013Q1

REPORT INFORMATION
  Report Type: Spontaneous
  Country: US (occurrence: None)
  Receive Date: 20130206
  Receipt Date: 20130206
  Transmission Date: 20140127
  Serious: No
  Sender: FDA-Public Use
  Company Number: None

PATIENT
  Age: 35 Year
  Sex: Female
  Weight: 83.92 kg

DRUGS (1)
  1. INFED [Suspect]
     Route: 042
     Dates: start: 20130131

REACTIONS (3)
  - Feeling abnormal [None]
  - Sinus congestion [None]
  - Palpitations [None]
